FAERS Safety Report 20153979 (Version 3)
Quarter: 2021Q4

REPORT INFORMATION
  Report Type: Other
  Country: US (occurrence: None)
  Receive Date: 20211207
  Receipt Date: 20211230
  Transmission Date: 20220303
  Serious: Yes (Life-Threatening)
  Sender: FDA-Public Use
  Company Number: US-ROCHE-2969078

PATIENT
  Age: 75 Year
  Sex: Female

DRUGS (4)
  1. CAPECITABINE [Suspect]
     Active Substance: CAPECITABINE
     Indication: Cholangiocarcinoma
     Route: 048
  2. AMIODARONE [Concomitant]
     Active Substance: AMIODARONE
  3. PROTONIX [Concomitant]
     Active Substance: PANTOPRAZOLE SODIUM
  4. OCTREOTIDE [Concomitant]
     Active Substance: OCTREOTIDE

REACTIONS (2)
  - Necrotising oesophagitis [Unknown]
  - Sepsis [Unknown]
